FAERS Safety Report 10838839 (Version 1)
Quarter: 2015Q1

REPORT INFORMATION
  Report Type: Spontaneous
  Country: CH (occurrence: None)
  Receive Date: 20150218
  Receipt Date: 20150218
  Transmission Date: 20150721
  Serious: Yes (Hospitalization)
  Sender: FDA-Public Use
  Company Number: 2015020021

PATIENT
  Age: 79 Year
  Sex: Female

DRUGS (17)
  1. NITRODERM [Suspect]
     Active Substance: NITROGLYCERIN
     Route: 062
  2. DILATREND (CARVEDILOL) [Concomitant]
  3. BRILIQUE (TICAGRELOR) [Concomitant]
     Active Substance: TICAGRELOR
  4. ATORVASTATIN (ATORVASTATIN) [Concomitant]
     Active Substance: ATORVASTATIN
  5. ASPIRIN CARDIO (ACETYLSALICYLIC ACID) [Concomitant]
     Active Substance: ASPIRIN
  6. AUGMENTIN (AMOXICILLIN SODIUM, CLAVULANATE POTASSIUM) [Concomitant]
  7. REMERON (MITRAZAPINE) [Concomitant]
  8. TOREM 200 MG (TORASEMIDE) [Suspect]
     Active Substance: TORSEMIDE
     Indication: PULMONARY OEDEMA
     Dates: start: 20140426, end: 20140426
  9. ADALAT [Suspect]
     Active Substance: NIFEDIPINE
     Indication: PULMONARY OEDEMA
     Dates: start: 20140425, end: 20140425
  10. METOLAZON 5 MG (METOLAZONE) [Suspect]
     Active Substance: METOLAZONE
     Indication: PULMONARY OEDEMA
     Route: 048
     Dates: start: 20140426, end: 20140426
  11. TRIATEC 5 MG (RAMIPRIL) [Suspect]
     Active Substance: RAMIPRIL
     Indication: PULMONARY OEDEMA
     Route: 048
     Dates: start: 20140426, end: 20140426
  12. LASIX [Suspect]
     Active Substance: FUROSEMIDE
     Indication: PULMONARY OEDEMA
     Route: 042
     Dates: start: 20140425, end: 20140425
  13. PANTOPRAZOL (PANTOPRAZOLE SODIIUM) [Concomitant]
  14. MORPHIN (MORPHINE SULFATE) [Concomitant]
  15. PHYSIOTENS (MOXONIDINE) [Concomitant]
  16. JANUVIA [Concomitant]
     Active Substance: SITAGLIPTIN PHOSPHATE
  17. INSULIN (INSULIN) [Concomitant]
     Active Substance: INSULIN NOS

REACTIONS (7)
  - Blood creatinine increased [None]
  - Muscular weakness [None]
  - Somnolence [None]
  - Acute kidney injury [None]
  - Cerebral hypoperfusion [None]
  - Dysarthria [None]
  - Coma scale abnormal [None]

NARRATIVE: CASE EVENT DATE: 20140425
